FAERS Safety Report 9552535 (Version 1)
Quarter: 2013Q3

REPORT INFORMATION
  Report Type: Spontaneous
  Country: US (occurrence: None)
  Receive Date: 20130724
  Receipt Date: 20130724
  Transmission Date: 20140515
  Serious: Yes (Hospitalization)
  Sender: FDA-Public Use
  Company Number: PHEH2012US014993

PATIENT
  Sex: Female

DRUGS (1)
  1. GLEEVEC [Suspect]
     Indication: MYELOID LEUKAEMIA
     Route: 048
     Dates: start: 20110728

REACTIONS (9)
  - Fatigue [None]
  - Weight decreased [None]
  - Asthenia [None]
  - Dehydration [None]
  - Hypotension [None]
  - White blood cell count decreased [None]
  - Haemoglobin decreased [None]
  - Neutrophil count decreased [None]
  - Drug intolerance [None]
